FAERS Safety Report 4798222-3 (Version None)
Quarter: 2005Q4

REPORT INFORMATION
  Report Type: 
  Country: None (occurrence: None)
  Receive Date: 20051012
  Receipt Date: 20050927
  Transmission Date: 20060501
  Serious: Yes (Hospitalization)
  Sender: FDA-Public Use
  Company Number: S05-FRA-03644-01

PATIENT
  Age: 60 Year
  Sex: Male

DRUGS (1)
  1. SEROPLEX (ESCITALOPRAM) [Suspect]

REACTIONS (2)
  - CONDITION AGGRAVATED [None]
  - GLAUCOMA [None]
